FAERS Safety Report 5025155-X (Version None)
Quarter: 2006Q2

REPORT INFORMATION
  Report Type: 
  Country: None (occurrence: None)
  Receive Date: 20060426
  Receipt Date: 20060125
  Transmission Date: 20061013
  Serious: Yes (Other)
  Sender: FDA-Public Use
  Company Number: 2006014313

PATIENT
  Age: 45 Year
  Sex: Female

DRUGS (3)
  1. LYRICA [Suspect]
     Indication: MUSCLE SPASMS
     Dates: start: 20060101
  2. LOMOTIL [Concomitant]
  3. PLAVIX [Concomitant]

REACTIONS (1)
  - CHROMATURIA [None]
